FAERS Safety Report 5393771-1 (Version None)
Quarter: 2007Q3

REPORT INFORMATION
  Report Type: 
  Country: None (occurrence: None)
  Receive Date: 20070719
  Receipt Date: 20070719
  Transmission Date: 20080115
  Serious: Yes (Disabling, Other)
  Sender: FDA-Public Use
  Company Number: None

PATIENT
  Age: 30 Year
  Sex: Male

DRUGS (5)
  1. PREGABALIN 100MG [Suspect]
     Indication: NEURALGIA
     Dosage: 100MG AT BEDTIME PO
     Route: 048
     Dates: start: 20070615, end: 20070618
  2. IBUPROFEN [Concomitant]
  3. METHYLPHENIDATE HCL [Concomitant]
  4. FLUTICASONE PROPIONATE [Concomitant]
  5. ADVAIR DISKUS 100/50 [Concomitant]

REACTIONS (4)
  - DIZZINESS [None]
  - HEADACHE [None]
  - MALAISE [None]
  - VISION BLURRED [None]
